FAERS Safety Report 8392353-7 (Version None)
Quarter: 2012Q1

REPORT INFORMATION
  Report Type: 
  Country: None (occurrence: None)
  Receive Date: 20120323
  Receipt Date: 20110404
  Transmission Date: 20120608
  Serious: Yes (Hospitalization, Other)
  Sender: FDA-Public Use
  Company Number: 163-21880-11040301

PATIENT
  Sex: Female

DRUGS (6)
  1. POTASSIUM CHLORIDE [Concomitant]
  2. DEXAMETHASONE [Concomitant]
  3. HYDROCHLOROTHIAZIDE [Concomitant]
  4. AMLODIPINE BESYLATE [Concomitant]
  5. REVLIMID [Suspect]
     Indication: MULTIPLE MYELOMA
     Dosage: 25 MG, FOR 14 DAYS, PO
     Route: 048
     Dates: start: 20100221
  6. MEGACE ES (MEGESTROL ACETATE) [Concomitant]

REACTIONS (2)
  - DIZZINESS [None]
  - DYSPNOEA [None]
